FAERS Safety Report 4732863-4 (Version None)
Quarter: 2005Q3

REPORT INFORMATION
  Report Type: 
  Country: None (occurrence: None)
  Receive Date: 20050803
  Receipt Date: 20050411
  Transmission Date: 20060218
  Serious: No
  Sender: FDA-Public Use
  Company Number: US-GLAXOSMITHKLINE-A0553611A

PATIENT
  Age: 43 Year
  Sex: Female

DRUGS (1)
  1. AVANDAMET [Suspect]
     Dosage: 2MG TWICE PER DAY
     Route: 048
     Dates: end: 20050328

REACTIONS (4)
  - DEPRESSION [None]
  - FATIGUE [None]
  - OEDEMA [None]
  - PAIN [None]
